FAERS Safety Report 18536217 (Version 5)
Quarter: 2021Q1

REPORT INFORMATION
  Report Type: Spontaneous
  Country: US (occurrence: US)
  Receive Date: 20201123
  Receipt Date: 20210302
  Transmission Date: 20210419
  Serious: No
  Sender: FDA-Public Use
  Company Number: US-PFIZER INC-2020458936

PATIENT
  Age: 68 Year
  Sex: Female
  Weight: 52.15 kg

DRUGS (3)
  1. EUCRISA [Suspect]
     Active Substance: CRISABOROLE
     Dosage: 1 G, 2X/DAY (1G TWICE A DAY)
     Dates: start: 201911
  2. EUCRISA [Suspect]
     Active Substance: CRISABOROLE
     Indication: ECZEMA
     Dosage: UNK, 2X/DAY (APPLY TO AFFECTED AREAS OF KNEES TWICE DAILY)
     Route: 061
  3. EUCRISA [Suspect]
     Active Substance: CRISABOROLE
     Dosage: UNK UNK, AS NEEDED(2%, APPLY TO ECZEMA LOCATED ON TRUNK BID (TWICE A DAY), PRN (AS NEEDED))

REACTIONS (3)
  - Intentional product use issue [Unknown]
  - Loss of personal independence in daily activities [Unknown]
  - Condition aggravated [Unknown]
